FAERS Safety Report 6889647-0 (Version None)
Quarter: 2010Q3

REPORT INFORMATION
  Report Type: 
  Country: None (occurrence: None)
  Receive Date: 20100730
  Receipt Date: 20080405
  Transmission Date: 20110219
  Serious: No
  Sender: FDA-Public Use
  Company Number: US-PFIZER INC-2008013150

PATIENT
  Sex: Male
  Weight: 56.25 kg

DRUGS (7)
  1. LIPITOR [Suspect]
     Indication: LOW DENSITY LIPOPROTEIN INCREASED
     Route: 048
  2. LIPITOR [Suspect]
     Indication: HYPERLIPIDAEMIA
  3. METOPROLOL SUCCINATE [Concomitant]
  4. NORVASC [Concomitant]
  5. FUROSEMIDE [Concomitant]
  6. TOPROL-XL [Concomitant]
  7. K-DUR [Concomitant]

REACTIONS (4)
  - JOINT SWELLING [None]
  - MYALGIA [None]
  - OEDEMA PERIPHERAL [None]
  - RASH [None]
